FAERS Safety Report 9329751 (Version 1)
Quarter: 2013Q2

REPORT INFORMATION
  Report Type: Spontaneous
  Country: US (occurrence: US)
  Receive Date: 20130604
  Receipt Date: 20130604
  Transmission Date: 20140414
  Serious: No
  Sender: FDA-Public Use
  Company Number: US-SANOFI-AVENTIS-2013SA035649

PATIENT
  Sex: 0

DRUGS (2)
  1. LANTUS [Suspect]
     Route: 051
  2. HUMALOG [Suspect]

REACTIONS (3)
  - Lipoma [Not Recovered/Not Resolved]
  - Pruritus [Not Recovered/Not Resolved]
  - Musculoskeletal pain [Not Recovered/Not Resolved]
